FAERS Safety Report 4388877-X (Version None)
Quarter: 2004Q2

REPORT INFORMATION
  Report Type: 
  Country: None (occurrence: None)
  Receive Date: 20040628
  Receipt Date: 20040618
  Transmission Date: 20050107
  Serious: Yes (Disabling)
  Sender: FDA-Public Use
  Company Number: BE-JNJFOC-20040603432

PATIENT
  Age: 65 Year
  Sex: Female

DRUGS (8)
  1. PROPULSID [Suspect]
     Indication: DIABETIC GASTROPARESIS
     Dosage: 10 MG, 4 IN 1 DAY, ORAL
     Route: 048
     Dates: start: 20040204
  2. FOSINIL (FOSINOPRIL SODIUM) [Concomitant]
  3. PANTOZOL (PANTOPRAZOLE SODIUM) [Concomitant]
  4. LIPITOR [Concomitant]
  5. NOOTROPIL (PIRACETAM) [Concomitant]
  6. TENORMIN [Concomitant]
  7. SINTROM [Concomitant]
  8. ACETAMINOPHEN [Concomitant]

REACTIONS (1)
  - FIBROMYALGIA [None]
